FAERS Safety Report 19383716 (Version 1)
Quarter: 2021Q2

REPORT INFORMATION
  Report Type: Spontaneous
  Country: FR (occurrence: FR)
  Receive Date: 20210608
  Receipt Date: 20210608
  Transmission Date: 20210717
  Serious: Yes (Life-Threatening, Other)
  Sender: FDA-Public Use
  Company Number: FR-AUROBINDO-AUR-APL-2021-023078

PATIENT
  Age: 65 Year
  Sex: Male
  Weight: 95 kg

DRUGS (1)
  1. RAMIPRIL. [Suspect]
     Active Substance: RAMIPRIL
     Indication: HYPERTENSION
     Dosage: 10 MILLIGRAM
     Route: 048

REACTIONS (2)
  - Loss of consciousness [Not Recovered/Not Resolved]
  - Angioedema [Not Recovered/Not Resolved]

NARRATIVE: CASE EVENT DATE: 20210504
